FAERS Safety Report 4903707-2 (Version None)
Quarter: 2006Q1

REPORT INFORMATION
  Report Type: 
  Country: None (occurrence: None)
  Receive Date: 20060208
  Receipt Date: 20060201
  Transmission Date: 20060701
  Serious: Yes (Death)
  Sender: FDA-Public Use
  Company Number: JP-SANOFI-SYNTHELABO-A01200600868

PATIENT
  Age: 56 Year
  Sex: Male

DRUGS (3)
  1. OXALIPLATIN [Suspect]
     Indication: RECTAL CANCER
     Route: 041
     Dates: start: 20060130, end: 20060130
  2. CALCIUM LEVOFOLINATE [Suspect]
     Route: 041
     Dates: start: 20060130, end: 20060131
  3. FLUOROURACIL [Suspect]
     Indication: RECTAL CANCER
     Dosage: 500 MG/BODY IN BOLUS THEN 750 MG/BODY AS CONTINUOUS INFUSION, DAY 1+2
     Route: 042
     Dates: start: 20060130, end: 20060131

REACTIONS (1)
  - ACUTE MYOCARDIAL INFARCTION [None]
